FAERS Safety Report 23033430 (Version 1)
Quarter: 2023Q4

REPORT INFORMATION
  Report Type: Spontaneous
  Country: US (occurrence: None)
  Receive Date: 20231004
  Receipt Date: 20231004
  Transmission Date: 20240109
  Serious: No
  Sender: FDA-Public Use
  Company Number: None

PATIENT
  Age: 62 Year
  Sex: Male
  Weight: 69.75 kg

DRUGS (8)
  1. QUVIVIQ [Suspect]
     Active Substance: DARIDOREXANT
     Indication: Insomnia
     Dosage: OTHER QUANTITY : 1 TABLET(S);?FREQUENCY : AT BEDTIME;?
     Route: 048
     Dates: start: 20230915, end: 20230919
  2. TESTOSTERONE [Concomitant]
     Active Substance: TESTOSTERONE
  3. ESTRADIOL CYPIONATE [Concomitant]
     Active Substance: ESTRADIOL CYPIONATE
  4. ANASTROZOLE [Concomitant]
     Active Substance: ANASTROZOLE
  5. PREGNYL [Concomitant]
     Active Substance: CHORIOGONADOTROPIN ALFA
  6. PROSTATE PQ [Concomitant]
  7. MULTI-VITAMIN [Concomitant]
     Active Substance: .ALPHA.-TOCOPHEROL ACETATE, DL-\ASCORBIC ACID\CYANOCOBALAMIN\FLUORIDE ION\FOLIC ACID\NIACIN\PYRIDOXI
  8. Vitamin D [Concomitant]

REACTIONS (3)
  - Pruritus [None]
  - Tinnitus [None]
  - Dyspnoea [None]

NARRATIVE: CASE EVENT DATE: 20230919
